FAERS Safety Report 15826243 (Version 1)
Quarter: 2019Q1

REPORT INFORMATION
  Report Type: Other
  Country: JP (occurrence: ZA)
  Receive Date: 20190115
  Receipt Date: 20190115
  Transmission Date: 20190417
  Serious: Yes (Other)
  Sender: FDA-Public Use
  Company Number: ZA-JACOBUS PHARMACEUTICAL COMPANY, INC.-2061197

PATIENT
  Age: 35 Year
  Sex: Male

DRUGS (7)
  1. DELAMANID [Suspect]
     Active Substance: DELAMANID
  2. PASER [Suspect]
     Active Substance: AMINOSALICYLIC ACID
     Indication: TUBERCULOSIS
     Route: 048
     Dates: start: 20180913
  3. LEVOFLOXACIN. [Suspect]
     Active Substance: LEVOFLOXACIN
  4. PYRAZINAMID [Suspect]
     Active Substance: PYRAZINAMIDE
  5. CLOGAZIMINE [Suspect]
     Active Substance: CLOFAZIMINE
  6. ISONIAZID. [Suspect]
     Active Substance: ISONIAZID
  7. BEDAQUILINE [Suspect]
     Active Substance: BEDAQUILINE

REACTIONS (1)
  - Visual impairment [Not Recovered/Not Resolved]

NARRATIVE: CASE EVENT DATE: 20181025
